FAERS Safety Report 8456941-1 (Version None)
Quarter: 2012Q2

REPORT INFORMATION
  Report Type: 
  Country: None (occurrence: None)
  Receive Date: 20120323
  Receipt Date: 20111017
  Transmission Date: 20120825
  Serious: Yes (Hospitalization)
  Sender: FDA-Public Use
  Company Number: 163-21880-11092121

PATIENT
  Age: 71 Year
  Sex: Female
  Weight: 62.5964 kg

DRUGS (4)
  1. CYTOXAN [Concomitant]
  2. REVLIMID [Suspect]
     Indication: MULTIPLE MYELOMA
     Dosage: 15 MG, QD X 21 DAYS, PO ; 10 MG, QD X 21 DAYS, PO
     Route: 048
     Dates: start: 20110401, end: 20110901
  3. REVLIMID [Suspect]
     Indication: MULTIPLE MYELOMA
     Dosage: 15 MG, QD X 21 DAYS, PO ; 10 MG, QD X 21 DAYS, PO
     Route: 048
     Dates: start: 20110901
  4. VELCADE [Concomitant]

REACTIONS (3)
  - DIARRHOEA [None]
  - LOCALISED INFECTION [None]
  - DEHYDRATION [None]
